FAERS Safety Report 5527879-4 (Version None)
Quarter: 2007Q4

REPORT INFORMATION
  Report Type: 
  Country: None (occurrence: None)
  Receive Date: 20071126
  Receipt Date: 20071126
  Transmission Date: 20080405
  Serious: Yes (Life-Threatening, Hospitalization, Disabling)
  Sender: FDA-Public Use
  Company Number: None

PATIENT
  Age: 32 Year
  Sex: Female
  Weight: 47.1741 kg

DRUGS (1)
  1. MIRENA [Suspect]
     Indication: CONTRACEPTION
     Dates: start: 20070909, end: 20070916

REACTIONS (5)
  - ECONOMIC PROBLEM [None]
  - IMPAIRED WORK ABILITY [None]
  - IUCD COMPLICATION [None]
  - PAIN [None]
  - UTERINE PAIN [None]
